FAERS Safety Report 14205248 (Version 2)
Quarter: 2017Q4

REPORT INFORMATION
  Report Type: Spontaneous
  Country: JP (occurrence: JP)
  Receive Date: 20171120
  Receipt Date: 20171127
  Transmission Date: 20180321
  Serious: Yes (Other)
  Sender: FDA-Public Use
  Company Number: JP-MYLANLABS-2017M1072851

PATIENT
  Age: 41 Year
  Sex: Male

DRUGS (2)
  1. ROPIVACAINE [Suspect]
     Active Substance: ROPIVACAINE
     Dosage: 0.2% FOR CONTINUOUS EPIDURAL BLOCK
     Route: 008
  2. ROPIVACAINE [Suspect]
     Active Substance: ROPIVACAINE
     Indication: COMPLEX REGIONAL PAIN SYNDROME
     Dosage: 10 ML OF 0.375-0.75% AT L4/5 AND L5/S1
     Route: 008

REACTIONS (2)
  - Postoperative adhesion [Recovered/Resolved]
  - Epidural fibrosis [Recovered/Resolved]
